FAERS Safety Report 6816233-0 (Version None)
Quarter: 2010Q3

REPORT INFORMATION
  Report Type: 
  Country: None (occurrence: None)
  Receive Date: 20100702
  Receipt Date: 20100702
  Transmission Date: 20110219
  Serious: Yes (Hospitalization)
  Sender: FDA-Public Use
  Company Number: None

PATIENT
  Sex: Female
  Weight: 76.4 kg

DRUGS (5)
  1. CYTARABINE [Suspect]
     Dosage: 70 MG
  2. DAUNORUBICIN HCL [Suspect]
     Dosage: 188 MG
  3. METHOTREXATE [Suspect]
     Dosage: 15 MG
  4. PEG-L ASPARAGINASE (K-H) [Suspect]
     Dosage: 4700 IU
  5. VINCRISTINE SULFATE [Suspect]
     Dosage: 8 MG

REACTIONS (8)
  - APNOEA [None]
  - AREFLEXIA [None]
  - BRAIN OEDEMA [None]
  - CARDIAC ARREST [None]
  - GENERAL PHYSICAL HEALTH DETERIORATION [None]
  - HYPOTENSION [None]
  - MENINGITIS [None]
  - MENTAL STATUS CHANGES [None]
